FAERS Safety Report 15865594 (Version 2)
Quarter: 2019Q3

REPORT INFORMATION
  Report Type: Report from Study
  Country: CA (occurrence: CA)
  Receive Date: 20190125
  Receipt Date: 20190819
  Transmission Date: 20191004
  Serious: Yes (Other)
  Sender: FDA-Public Use
  Company Number: CA-ROCHE-2249027

PATIENT
  Age: 43 Year
  Sex: Female

DRUGS (6)
  1. ZOPLICONE [Concomitant]
     Active Substance: ZOPICLONE
     Dosage: ONGOING
     Route: 065
     Dates: start: 201804
  2. BACLOFEN. [Concomitant]
     Active Substance: BACLOFEN
     Dosage: ONGOING
     Route: 065
     Dates: start: 2008
  3. OCREVUS [Suspect]
     Active Substance: OCRELIZUMAB
     Indication: RELAPSING-REMITTING MULTIPLE SCLEROSIS
     Dosage: 300 MG AT DAY 0 AND 14, THEN 600 MG EVERY 6 MONTH ;ONGOING: YES?DATE OF TREATMENT: 02/AUG/2019
     Route: 042
     Dates: start: 20190115
  4. BENADRYL [Concomitant]
     Active Substance: DIPHENHYDRAMINE HYDROCHLORIDE
  5. LYRICA [Concomitant]
     Active Substance: PREGABALIN
     Route: 065
     Dates: start: 200804
  6. SOLU-MEDROL [Concomitant]
     Active Substance: METHYLPREDNISOLONE SODIUM SUCCINATE

REACTIONS (5)
  - Urine output decreased [Recovered/Resolved]
  - Skin burning sensation [Recovered/Resolved]
  - Fatigue [Recovered/Resolved]
  - Infusion related reaction [Recovered/Resolved]
  - Headache [Recovered/Resolved]

NARRATIVE: CASE EVENT DATE: 20190115
